FAERS Safety Report 25270019 (Version 2)
Quarter: 2025Q2

REPORT INFORMATION
  Report Type: Spontaneous
  Country: FR (occurrence: FR)
  Receive Date: 20250505
  Receipt Date: 20250603
  Transmission Date: 20250716
  Serious: Yes (Other)
  Sender: GLAXOSMITHKLINE
  Company Number: None

PATIENT

DRUGS (6)
  1. ATOVAQUONE [Suspect]
     Active Substance: ATOVAQUONE
     Indication: Prophylaxis
     Dosage: 1 DF, QD
     Route: 048
     Dates: start: 20250123, end: 20250411
  2. BACTRIM [Suspect]
     Active Substance: SULFAMETHOXAZOLE\TRIMETHOPRIM
     Indication: Prophylaxis
     Dosage: 1 DF, QD
     Route: 048
     Dates: start: 20250113, end: 20250123
  3. OBINUTUZUMAB [Suspect]
     Active Substance: OBINUTUZUMAB
     Indication: Immunoglobulin G4 related disease
     Dosage: 1 G, Q2W (15 DAY)
     Route: 058
     Dates: start: 20241230
  4. ZOLEDRONIC ACID ANHYDROUS [Suspect]
     Active Substance: ZOLEDRONIC ACID ANHYDROUS
     Indication: Osteopenia
     Route: 042
     Dates: start: 20250113, end: 20250113
  5. ASPIRIN [Suspect]
     Active Substance: ASPIRIN
     Indication: Coronary artery aneurysm
     Dosage: 1 DF, QD
     Route: 048
     Dates: start: 20241129
  6. ROSUVASTATIN [Suspect]
     Active Substance: ROSUVASTATIN
     Indication: Coronary artery aneurysm
     Dosage: 5 MG, QD
     Route: 048
     Dates: start: 20241129, end: 20250418

REACTIONS (1)
  - Mixed liver injury [Recovering/Resolving]

NARRATIVE: CASE EVENT DATE: 20250407
